FAERS Safety Report 11161960 (Version 1)
Quarter: 2015Q2

REPORT INFORMATION
  Report Type: Spontaneous
  Country: US (occurrence: US)
  Receive Date: 20150604
  Receipt Date: 20150604
  Transmission Date: 20150821
  Serious: No
  Sender: FDA-Public Use
  Company Number: US-SA-2014SA102274

PATIENT
  Age: 43 Year
  Sex: Male

DRUGS (2)
  1. SOLOSTAR [Concomitant]
     Active Substance: DEVICE
     Dates: start: 201403
  2. LANTUS SOLOSTAR [Suspect]
     Active Substance: INSULIN GLARGINE
     Indication: DIABETES MELLITUS
     Dosage: FREQUENCY: QHS: EVERY NIGHT AT BEDTIME DOSE:120 UNIT(S)
     Route: 065
     Dates: start: 201403

REACTIONS (4)
  - Incorrect product storage [Unknown]
  - Discomfort [Recovered/Resolved]
  - Drug dose omission [Unknown]
  - Wrong technique in drug usage process [Unknown]
